FAERS Safety Report 5624492-5 (Version None)
Quarter: 2008Q1

REPORT INFORMATION
  Report Type: 
  Country: None (occurrence: None)
  Receive Date: 20080211
  Receipt Date: 20080211
  Transmission Date: 20080703
  Serious: No
  Sender: FDA-Public Use
  Company Number: None

PATIENT
  Age: 66 Year
  Sex: Female
  Weight: 72.5755 kg

DRUGS (1)
  1. ZICAL NASAL GEL ZICUM GLUCONICUM 2X ZICAM LLC PHOENIX, ARIZONA [Suspect]
     Indication: NASOPHARYNGITIS
     Dosage: 1 SQUEEZE OF NOZZLE EACH SIDE EVERY 4 HOURS NASAL
     Route: 045
     Dates: start: 20061215, end: 20061218

REACTIONS (1)
  - ANOSMIA [None]
